FAERS Safety Report 6593853-2 (Version None)
Quarter: 2010Q1

REPORT INFORMATION
  Report Type: 
  Country: None (occurrence: None)
  Receive Date: 20100222
  Receipt Date: 20100211
  Transmission Date: 20100710
  Serious: Yes (Other)
  Sender: FDA-Public Use
  Company Number: US-PFIZER INC-2010019176

PATIENT
  Sex: Female

DRUGS (1)
  1. LIPITOR [Suspect]
     Dosage: UNK
     Dates: start: 19960101

REACTIONS (1)
  - DIABETES MELLITUS [None]
